FAERS Safety Report 6661575-5 (Version None)
Quarter: 2010Q1

REPORT INFORMATION
  Report Type: 
  Country: None (occurrence: None)
  Receive Date: 20100331
  Receipt Date: 20091021
  Transmission Date: 20100710
  Serious: Yes (Other)
  Sender: FDA-Public Use
  Company Number: US-BRISTOL-MYERS SQUIBB COMPANY-13999826

PATIENT
  Age: 62 Year
  Sex: Female

DRUGS (12)
  1. ERBITUX [Suspect]
     Indication: COLON CANCER
     Route: 042
     Dates: start: 20071127
  2. HYDROCODONE BITARTRATE [Concomitant]
  3. METFORMIN HCL [Concomitant]
  4. ALLOPURINOL [Concomitant]
  5. LISINOPRIL [Concomitant]
  6. HYDROCHLOROTHIAZIDE [Concomitant]
  7. LEVOTHYROXINE SODIUM [Concomitant]
  8. PREGABALIN [Concomitant]
  9. PHENERGAN HCL [Concomitant]
  10. ATARAX [Concomitant]
  11. OXALIPLATIN [Concomitant]
  12. CITALOPRAM HYDROBROMIDE [Concomitant]

REACTIONS (2)
  - BLOOD PRESSURE DECREASED [None]
  - DYSPNOEA [None]
